FAERS Safety Report 6552272-5 (Version None)
Quarter: 2010Q1

REPORT INFORMATION
  Report Type: 
  Country: None (occurrence: None)
  Receive Date: 20100126
  Receipt Date: 20100115
  Transmission Date: 20100710
  Serious: Yes (Life-Threatening, Other)
  Sender: FDA-Public Use
  Company Number: US-BAXTER-2009BH003242

PATIENT
  Age: 44 Year
  Sex: Female
  Weight: 90 kg

DRUGS (12)
  1. HEPARIN SODIUM INJECTION [Suspect]
     Indication: STERNOTOMY
     Route: 065
     Dates: start: 20071114
  2. HEPARIN SODIUM INJECTION [Suspect]
     Indication: ATRIAL SEPTAL DEFECT REPAIR
     Route: 065
     Dates: start: 20071114
  3. HEPARIN SODIUM INJECTION [Suspect]
     Route: 065
     Dates: start: 20081105
  4. HEPARIN SODIUM INJECTION [Suspect]
     Route: 065
     Dates: start: 20081105
  5. ACIPHEX [Concomitant]
     Indication: DRUG USE FOR UNKNOWN INDICATION
     Route: 065
  6. BIRTH CONTROL [Concomitant]
     Indication: DRUG USE FOR UNKNOWN INDICATION
     Route: 065
  7. ECOTRIN [Concomitant]
     Indication: DRUG USE FOR UNKNOWN INDICATION
     Route: 048
  8. ARTIFICIAL TEARS [Concomitant]
     Indication: DRUG USE FOR UNKNOWN INDICATION
     Route: 046
  9. METOPROLOL [Concomitant]
     Indication: DRUG USE FOR UNKNOWN INDICATION
     Route: 048
  10. AMLODIPINE [Concomitant]
     Indication: DRUG USE FOR UNKNOWN INDICATION
     Route: 048
  11. WARFARIN SODIUM [Concomitant]
     Indication: DRUG USE FOR UNKNOWN INDICATION
     Route: 048
  12. NYSTATIN [Concomitant]
     Indication: DRUG USE FOR UNKNOWN INDICATION
     Route: 048

REACTIONS (11)
  - ANAEMIA [None]
  - APHTHOUS STOMATITIS [None]
  - ATRIAL SEPTAL DEFECT [None]
  - CARDIAC ARREST [None]
  - CEREBROVASCULAR ACCIDENT [None]
  - COAGULOPATHY [None]
  - DEEP VEIN THROMBOSIS [None]
  - HAEMORRHAGE [None]
  - MYOCARDIAL INFARCTION [None]
  - PULMONARY EMBOLISM [None]
  - TRANSIENT ISCHAEMIC ATTACK [None]
